FAERS Safety Report 8086261-9 (Version None)
Quarter: 2012Q1

REPORT INFORMATION
  Report Type: 
  Country: None (occurrence: None)
  Receive Date: 20120128
  Receipt Date: 20110429
  Transmission Date: 20120608
  Serious: No
  Sender: FDA-Public Use
  Company Number: US-ABBOTT-11P-163-0722426-00

PATIENT
  Sex: Female
  Weight: 74.91 kg

DRUGS (7)
  1. WELLBUTRIN [Concomitant]
     Indication: ANXIETY
  2. HUMIRA [Suspect]
     Indication: PSORIATIC ARTHROPATHY
     Route: 058
     Dates: start: 20070101
  3. KLONOPIN [Concomitant]
     Indication: BLEPHAROSPASM
  4. ESTRASE [Concomitant]
     Indication: PRODUCT USED FOR UNKNOWN INDICATION
  5. NEXIUM [Concomitant]
     Indication: GASTROOESOPHAGEAL REFLUX DISEASE
  6. BENTYL [Concomitant]
     Indication: IRRITABLE BOWEL SYNDROME
  7. UNKNOWN MEDICATION [Concomitant]
     Indication: PRODUCT USED FOR UNKNOWN INDICATION
     Dosage: FOR HANDS PRN

REACTIONS (2)
  - MIDDLE EAR EFFUSION [None]
  - SINUSITIS [None]
